FAERS Safety Report 6684510-2 (Version None)
Quarter: 2010Q2

REPORT INFORMATION
  Report Type: 
  Country: None (occurrence: None)
  Receive Date: 20100416
  Receipt Date: 20100327
  Transmission Date: 20101027
  Serious: Yes (Hospitalization, Other)
  Sender: FDA-Public Use
  Company Number: US-ROCHE-628570

PATIENT
  Sex: Female
  Weight: 70.8 kg

DRUGS (5)
  1. CAPECITABINE [Suspect]
     Dosage: 2000 MG IN THE MORNING AND 1500 MG IN THE EVENING.
     Route: 048
     Dates: start: 20080926, end: 20100327
  2. COUMADIN [Suspect]
     Indication: ANTICOAGULANT THERAPY
     Route: 065
     Dates: start: 20090101, end: 20090101
  3. LISINOPRIL VS HCTZ [Concomitant]
     Dosage: DOSE: 10/12.5
     Route: 048
  4. LORTAB [Concomitant]
     Indication: PAIN
     Route: 048
  5. VITAMIN B-12 [Concomitant]
     Route: 048

REACTIONS (3)
  - DEEP VEIN THROMBOSIS [None]
  - DRUG TOXICITY [None]
  - MALIGNANT NEOPLASM PROGRESSION [None]
